FAERS Safety Report 5135190-9 (Version None)
Quarter: 2006Q4

REPORT INFORMATION
  Report Type: 
  Country: None (occurrence: None)
  Receive Date: 20061023
  Receipt Date: 20061023
  Transmission Date: 20070319
  Serious: Yes (Hospitalization)
  Sender: FDA-Public Use
  Company Number: None

PATIENT
  Age: 41 Year
  Sex: Female
  Weight: 68.0396 kg

DRUGS (2)
  1. GABAPENTIN [Suspect]
     Indication: MOOD ALTERED
     Dosage: 100MG BID PO
     Route: 048
     Dates: start: 20060926, end: 20061021
  2. GABAPENTIN [Suspect]
     Indication: PAIN
     Dosage: 100MG BID PO
     Route: 048
     Dates: start: 20060926, end: 20061021

REACTIONS (9)
  - ACTIVITIES OF DAILY LIVING IMPAIRED [None]
  - ASTHENIA [None]
  - CHEST PAIN [None]
  - COUGH [None]
  - MYALGIA [None]
  - NEURALGIA [None]
  - PAIN IN EXTREMITY [None]
  - THYROID DISORDER [None]
  - VISION BLURRED [None]
